FAERS Safety Report 13563771 (Version 1)
Quarter: 2017Q2

REPORT INFORMATION
  Report Type: Spontaneous
  Country: US (occurrence: US)
  Receive Date: 20170519
  Receipt Date: 20170519
  Transmission Date: 20170830
  Serious: No
  Sender: FDA-Public Use
  Company Number: None

PATIENT
  Age: 57 Year
  Sex: Male

DRUGS (1)
  1. ZYTIGA [Suspect]
     Active Substance: ABIRATERONE ACETATE
     Indication: PROSTATE CANCER
     Dosage: 4/2016 T0 2/2017
     Dates: start: 201604, end: 201702

REACTIONS (2)
  - Malignant neoplasm progression [None]
  - Prostate cancer stage IV [None]

NARRATIVE: CASE EVENT DATE: 20170201
